FAERS Safety Report 4516336-X (Version None)
Quarter: 2004Q4

REPORT INFORMATION
  Report Type: 
  Country: None (occurrence: None)
  Receive Date: 20041202
  Receipt Date: 20040708
  Transmission Date: 20050328
  Serious: No
  Sender: FDA-Public Use
  Company Number: US-GLAXOSMITHKLINE-A0517417A

PATIENT
  Sex: Male

DRUGS (4)
  1. AUGMENTIN '125' [Suspect]
     Indication: ILL-DEFINED DISORDER
     Dosage: 1TAB TWICE PER DAY
     Route: 048
  2. ACCUPRIL [Concomitant]
  3. ASPIRIN [Concomitant]
  4. COLCHICINE [Concomitant]

REACTIONS (1)
  - GOUT [None]
